FAERS Safety Report 9465508 (Version 3)
Quarter: 2013Q3

REPORT INFORMATION
  Report Type: Spontaneous
  Country: US (occurrence: US)
  Receive Date: 20130820
  Receipt Date: 20130913
  Transmission Date: 20140515
  Serious: Yes (Life-Threatening, Hospitalization, Other)
  Sender: FDA-Public Use
  Company Number: US-JNJFOC-20130803580

PATIENT
  Age: 32 Year
  Sex: Male
  Weight: 92.99 kg

DRUGS (2)
  1. TYLENOL [Suspect]
     Indication: MYALGIA
     Route: 048
     Dates: end: 20130528
  2. TYLENOL [Suspect]
     Indication: PROPHYLAXIS
     Route: 048
     Dates: end: 20130528

REACTIONS (6)
  - Toxicity to various agents [Recovering/Resolving]
  - Cognitive disorder [Unknown]
  - Asthenia [Unknown]
  - Weight decreased [Unknown]
  - Acute hepatic failure [Recovering/Resolving]
  - Product packaging issue [Unknown]
